FAERS Safety Report 4846625-0 (Version None)
Quarter: 2005Q4

REPORT INFORMATION
  Report Type: 
  Country: None (occurrence: None)
  Receive Date: 20051202
  Receipt Date: 20051122
  Transmission Date: 20060501
  Serious: Yes (Death)
  Sender: FDA-Public Use
  Company Number: 2005JP001169

PATIENT
  Age: 80 Year
  Sex: Male

DRUGS (5)
  1. TACROLIMUS CAPSULES(TACROLIMUS CAPSULES) CAPSULE [Suspect]
     Indication: MYASTHENIA GRAVIS
     Dosage: 3.00 MG,  D, ORAL
     Route: 048
     Dates: start: 20050406, end: 20050517
  2. NORVASC [Concomitant]
  3. MARZULENE S (LEVOGLUTAMIDE, SODIUM GUALENATE) [Concomitant]
  4. SELBEX (TEPRENONE) [Concomitant]
  5. ASPARA K (ASPARTATE POTASSIUM) [Concomitant]

REACTIONS (2)
  - EXTRUSION OF DEVICE [None]
  - INJURY ASPHYXIATION [None]
